FAERS Safety Report 9704991 (Version 2)
Quarter: 2013Q4

REPORT INFORMATION
  Report Type: Spontaneous
  Country: US (occurrence: US)
  Receive Date: 20131122
  Receipt Date: 20131201
  Transmission Date: 20140711
  Serious: No
  Sender: FDA-Public Use
  Company Number: US-ABBVIE-13P-163-1138601-00

PATIENT
  Age: 60 Year
  Sex: Male
  Weight: 79.9 kg

DRUGS (2)
  1. ANDROGEL [Suspect]
     Indication: BLOOD TESTOSTERONE DECREASED
     Dosage: TWO PUMPS PER DAY
     Dates: start: 201305
  2. ANDROGEL [Suspect]
     Indication: BLOOD TESTOSTERONE DECREASED
     Dosage: ONE PACKET PER DAY
     Dates: start: 201301, end: 201305

REACTIONS (8)
  - Prostatomegaly [Unknown]
  - Therapeutic response unexpected [Unknown]
  - Arthralgia [Unknown]
  - Muscular weakness [Unknown]
  - Application site erythema [Unknown]
  - Urinary retention [Unknown]
  - Asthenia [Unknown]
  - Drug ineffective [Unknown]
